FAERS Safety Report 23753031 (Version 1)
Quarter: 2024Q2

REPORT INFORMATION
  Report Type: Spontaneous
  Country: CN (occurrence: None)
  Receive Date: 20240417
  Receipt Date: 20240417
  Transmission Date: 20240716
  Serious: Yes (Other)
  Sender: FDA-Public Use
  Company Number: 2024A086791

PATIENT

DRUGS (2)
  1. TAGRISSO [Suspect]
     Active Substance: OSIMERTINIB
     Route: 048
  2. CAPMATINIB [Concomitant]
     Active Substance: CAPMATINIB
     Indication: Product used for unknown indication

REACTIONS (2)
  - Malignant neoplasm progression [Unknown]
  - Off label use [Unknown]
